FAERS Safety Report 9297938 (Version 1)
Quarter: 2013Q2

REPORT INFORMATION
  Report Type: Spontaneous
  Country: US (occurrence: US)
  Receive Date: 20130520
  Receipt Date: 20130520
  Transmission Date: 20140414
  Serious: Yes (Disabling, Other)
  Sender: FDA-Public Use
  Company Number: US-JNJFOC-20130503119

PATIENT
  Sex: Female
  Weight: 63.5 kg

DRUGS (11)
  1. LEVAQUIN [Suspect]
     Indication: ENTEROBACTER INFECTION
     Route: 048
     Dates: start: 2001
  2. LEVAQUIN [Suspect]
     Indication: ENTEROBACTER INFECTION
     Route: 048
     Dates: start: 201301, end: 201301
  3. LEVAQUIN [Suspect]
     Indication: PRODUCT USED FOR UNKNOWN INDICATION
     Route: 048
     Dates: start: 2001
  4. LEVAQUIN [Suspect]
     Indication: PRODUCT USED FOR UNKNOWN INDICATION
     Route: 048
     Dates: start: 201301, end: 201301
  5. CIPRO [Suspect]
     Indication: ENTEROBACTER INFECTION
     Route: 065
  6. MOBIC [Concomitant]
     Route: 065
     Dates: start: 2006
  7. PLAQUENIL [Concomitant]
     Route: 065
     Dates: start: 2006
  8. CLONOPIN [Concomitant]
     Route: 065
     Dates: start: 2006
  9. NEURONTIN [Concomitant]
     Route: 065
     Dates: end: 201301
  10. CYMBALTA [Concomitant]
     Route: 065
  11. LYRICA [Concomitant]
     Route: 065

REACTIONS (4)
  - Immune system disorder [Not Recovered/Not Resolved]
  - Enterobacter infection [Unknown]
  - Tendonitis [Not Recovered/Not Resolved]
  - Pain [Recovering/Resolving]
